FAERS Safety Report 10617707 (Version 2)
Quarter: 2014Q4

REPORT INFORMATION
  Report Type: Report from Study
  Country: KR (occurrence: KR)
  Receive Date: 20141201
  Receipt Date: 20141209
  Transmission Date: 20150529
  Serious: Yes (Hospitalization)
  Sender: FDA-Public Use
  Company Number: KR-GLAXOSMITHKLINE-KR2014GSK003255

PATIENT
  Age: 71 Year
  Sex: Female
  Weight: 53 kg

DRUGS (2)
  1. VINORELBINE TARTRATE. [Suspect]
     Active Substance: VINORELBINE TARTRATE
     Indication: BREAST NEOPLASM
     Dosage: 16 MG/M2, UNK
     Dates: start: 20140717
  2. TYKERB [Suspect]
     Active Substance: LAPATINIB DITOSYLATE
     Indication: BREAST NEOPLASM
     Dosage: 1000 MG, QD
     Dates: start: 20140717, end: 20140727

REACTIONS (1)
  - Febrile neutropenia [Recovered/Resolved]

NARRATIVE: CASE EVENT DATE: 20140925
